FAERS Safety Report 21575351 (Version 1)
Quarter: 2022Q4

REPORT INFORMATION
  Report Type: Report from Study
  Country: ZA (occurrence: ZA)
  Receive Date: 20221110
  Receipt Date: 20221110
  Transmission Date: 20230113
  Serious: Yes (Other)
  Sender: FDA-Public Use
  Company Number: ZA-002147023-NVSC2022ZA246084

PATIENT
  Sex: Female

DRUGS (1)
  1. COSENTYX [Suspect]
     Active Substance: SECUKINUMAB
     Indication: Ankylosing spondylitis
     Dosage: 150 MG, QW
     Route: 058
     Dates: start: 20220428

REACTIONS (5)
  - Systemic lupus erythematosus [Recovering/Resolving]
  - Rash [Unknown]
  - Vasculitis [Recovering/Resolving]
  - Breast mass [Recovering/Resolving]
  - Cough [Recovering/Resolving]
